FAERS Safety Report 13139297 (Version 2)
Quarter: 2017Q1

REPORT INFORMATION
  Report Type: Spontaneous
  Country: US (occurrence: US)
  Receive Date: 20170123
  Receipt Date: 20170207
  Transmission Date: 20170428
  Serious: Yes (Other)
  Sender: FDA-Public Use
  Company Number: US-JNJFOC-20170108131

PATIENT
  Age: 60 Year
  Sex: Female
  Weight: 72.58 kg

DRUGS (7)
  1. CELEXA [Concomitant]
     Active Substance: CITALOPRAM HYDROBROMIDE
     Indication: DEPRESSION
     Dosage: CURRENT
     Route: 065
     Dates: start: 2013
  2. PERCOCET [Concomitant]
     Active Substance: ACETAMINOPHEN\OXYCODONE HYDROCHLORIDE
     Indication: PROCEDURAL PAIN
     Dosage: DOSAGE: 325MG/5MGINETRVAL: 2 WEEKS, START DATE: 2 WEEKS AGO??CURRENT
     Route: 065
     Dates: start: 20161222
  3. BENADRYL EXTRA STRENGTH ITCH COOLING [Suspect]
     Active Substance: DIPHENHYDRAMINE HYDROCHLORIDE\ZINC ACETATE
     Indication: PRURITUS
     Dosage: 3 SQUIRTS, 1 SPRAY ON EACH AREA OF IRRITATION ONCE ONLY
     Route: 061
     Dates: start: 20170108, end: 20170108
  4. GABAPENTIN. [Concomitant]
     Active Substance: GABAPENTIN
     Indication: FIBROMYALGIA
     Dosage: CURRENT
     Route: 065
     Dates: start: 2010
  5. AMITIZA [Concomitant]
     Active Substance: LUBIPROSTONE
     Indication: IRRITABLE BOWEL SYNDROME
     Dosage: CURRENT
     Route: 065
     Dates: start: 2015
  6. BUPROPION HCL [Concomitant]
     Active Substance: BUPROPION HYDROCHLORIDE
     Indication: DEPRESSION
     Dosage: CURRENT
     Route: 065
     Dates: start: 2016
  7. DIAZEPAM. [Concomitant]
     Active Substance: DIAZEPAM
     Indication: MUSCLE SPASMS
     Dosage: CURRENT
     Route: 065
     Dates: start: 20161222

REACTIONS (3)
  - Pruritus [Recovering/Resolving]
  - Vomiting [Recovering/Resolving]
  - Urticaria [Recovering/Resolving]

NARRATIVE: CASE EVENT DATE: 20170108
